FAERS Safety Report 12080917 (Version 1)
Quarter: 2016Q1

REPORT INFORMATION
  Report Type: Spontaneous
  Country: US (occurrence: US)
  Receive Date: 20160216
  Receipt Date: 20160216
  Transmission Date: 20160526
  Serious: No
  Sender: FDA-Public Use
  Company Number: US-BAYER-2016-021496

PATIENT
  Sex: Male

DRUGS (2)
  1. LOTRIMIN [Suspect]
     Active Substance: CLOTRIMAZOLE
     Indication: FUNGAL SKIN INFECTION
  2. LOTRIMIN ULTRA [Suspect]
     Active Substance: BUTENAFINE HYDROCHLORIDE
     Indication: FUNGAL SKIN INFECTION

REACTIONS (3)
  - Therapeutic response unexpected [None]
  - Off label use [None]
  - Product use issue [None]
